FAERS Safety Report 4498262-8 (Version None)
Quarter: 2004Q3

REPORT INFORMATION
  Report Type: 
  Country: None (occurrence: None)
  Receive Date: 20040927
  Receipt Date: 20040610
  Transmission Date: 20050211
  Serious: No
  Sender: FDA-Public Use
  Company Number: USA040669842

PATIENT
  Age: 46 Year
  Sex: Female
  Weight: 68 kg

DRUGS (2)
  1. STRATTERA [Suspect]
     Indication: ATTENTION DEFICIT/HYPERACTIVITY DISORDER
     Dates: start: 20040501
  2. VALTREX (VALACICLOVIR) [Concomitant]

REACTIONS (3)
  - HEART RATE [None]
  - MUSCLE TWITCHING [None]
  - WEIGHT DECREASED [None]
